FAERS Safety Report 21972354 (Version 1)
Quarter: 2023Q1

REPORT INFORMATION
  Report Type: Spontaneous
  Country: US (occurrence: US)
  Receive Date: 20230209
  Receipt Date: 20230209
  Transmission Date: 20230417
  Serious: No
  Sender: FDA-Public Use
  Company Number: US-BRISTOL-MYERS SQUIBB COMPANY-2023-019157

PATIENT
  Age: 90 Year
  Sex: Male

DRUGS (3)
  1. REVLIMID [Suspect]
     Active Substance: LENALIDOMIDE
     Indication: Plasma cell myeloma
     Dosage: FREQ: EVERY OTHER DAY
     Route: 048
     Dates: start: 20221130
  2. REVLIMID [Suspect]
     Active Substance: LENALIDOMIDE
     Indication: Neoplasm malignant
  3. REVLIMID [Suspect]
     Active Substance: LENALIDOMIDE
     Indication: Metastases to breast

REACTIONS (3)
  - Dizziness [Unknown]
  - Rash pruritic [Unknown]
  - Blood pressure increased [Recovered/Resolved]
